FAERS Safety Report 6248663-2 (Version None)
Quarter: 2009Q2

REPORT INFORMATION
  Report Type: 
  Country: None (occurrence: None)
  Receive Date: 20090624
  Receipt Date: 20090518
  Transmission Date: 20091009
  Serious: Yes (Other)
  Sender: FDA-Public Use
  Company Number: 09US001464

PATIENT
  Age: 67 Year
  Sex: Female
  Weight: 68 kg

DRUGS (4)
  1. MINOXIDIL [Suspect]
     Indication: ALOPECIA
     Dosage: 1 DROPPER, BID, TOPICAL
     Route: 061
     Dates: start: 20050501
  2. PRAVACHOL [Concomitant]
  3. TRAZODONE HCL [Concomitant]
  4. TOPROL-XL [Concomitant]

REACTIONS (1)
  - CARDIAC FAILURE CONGESTIVE [None]
